FAERS Safety Report 6814394-0 (Version None)
Quarter: 2010Q3

REPORT INFORMATION
  Report Type: 
  Country: None (occurrence: None)
  Receive Date: 20100702
  Receipt Date: 20100624
  Transmission Date: 20110219
  Serious: Yes (Other)
  Sender: FDA-Public Use
  Company Number: JP-JNJFOC-20100605812

PATIENT
  Sex: Female
  Weight: 56 kg

DRUGS (10)
  1. REMICADE [Suspect]
     Indication: RHEUMATOID ARTHRITIS
     Dosage: 18TH
     Route: 042
  2. REMICADE [Suspect]
     Route: 042
  3. METHOTREXATE [Suspect]
     Indication: RHEUMATOID ARTHRITIS
     Route: 048
  4. RHEUMATREX [Suspect]
     Indication: RHEUMATOID ARTHRITIS
     Route: 048
  5. FOSAMAC [Concomitant]
     Indication: OSTEOPOROSIS
     Route: 048
  6. INTEBAN SP [Concomitant]
     Indication: RHEUMATOID ARTHRITIS
     Route: 048
  7. FOLIAMIN [Concomitant]
     Indication: FOLATE DEFICIENCY
     Route: 048
  8. ASPARA-CA [Concomitant]
     Indication: OSTEOPOROSIS
     Route: 048
  9. GASTER D [Concomitant]
     Indication: GASTRITIS
     Route: 048
  10. ULCERLMIN [Concomitant]
     Indication: GASTRITIS
     Route: 048

REACTIONS (3)
  - HAEMATEMESIS [None]
  - HAEMOPTYSIS [None]
  - PNEUMONIA [None]
